FAERS Safety Report 8832518 (Version 1)
Quarter: 2012Q4

REPORT INFORMATION
  Report Type: Spontaneous
  Country: US (occurrence: None)
  Receive Date: 20121009
  Receipt Date: 20121009
  Transmission Date: 20130627
  Serious: Yes (Other)
  Sender: FDA-Public Use
  Company Number: None

PATIENT
  Age: 75 Year
  Sex: Female
  Weight: 55.34 kg

DRUGS (1)
  1. OMEPRAZOLE DELAYED RELEASE [Suspect]
     Indication: ACID REFLUX
     Dosage: 40 mg 1 PO
     Route: 048
     Dates: start: 20120911, end: 20120923

REACTIONS (5)
  - Stomatitis [None]
  - Glossitis [None]
  - Burning sensation [None]
  - Cheilitis [None]
  - Feeling hot [None]
